FAERS Safety Report 4930391-4 (Version None)
Quarter: 2006Q1

REPORT INFORMATION
  Report Type: 
  Country: None (occurrence: None)
  Receive Date: 20060228
  Receipt Date: 20060210
  Transmission Date: 20060701
  Serious: Yes (Other)
  Sender: FDA-Public Use
  Company Number: DSA_27802_2006

PATIENT
  Age: 78 Year
  Sex: Female

DRUGS (2)
  1. CARDIZEM LA [Suspect]
     Indication: HYPERTENSION
     Dosage: 240 MG Q DAY
     Dates: start: 20060111, end: 20060101
  2. ENALAPRIL MALEATE [Concomitant]

REACTIONS (4)
  - ANXIETY [None]
  - COUGH [None]
  - PRURITUS [None]
  - URTICARIA [None]
